FAERS Safety Report 6225721-X (Version None)
Quarter: 2009Q2

REPORT INFORMATION
  Report Type: 
  Country: None (occurrence: None)
  Receive Date: 20090612
  Receipt Date: 20090430
  Transmission Date: 20091009
  Serious: No
  Sender: FDA-Public Use
  Company Number: US-ABBOTT-09P-163-0570987-00

PATIENT
  Sex: Male

DRUGS (1)
  1. HUMIRA [Suspect]
     Indication: RHEUMATOID ARTHRITIS
     Dates: start: 20081030

REACTIONS (5)
  - ABASIA [None]
  - DIZZINESS [None]
  - DRY MOUTH [None]
  - PAIN [None]
  - POOR QUALITY SLEEP [None]
